FAERS Safety Report 15296615 (Version 1)
Quarter: 2018Q3

REPORT INFORMATION
  Report Type: Spontaneous
  Country: FI (occurrence: FI)
  Receive Date: 20180820
  Receipt Date: 20180820
  Transmission Date: 20181010
  Serious: Yes (Hospitalization)
  Sender: FDA-Public Use
  Company Number: FI-PFIZER INC-2018330196

PATIENT
  Age: 51 Year
  Sex: Male

DRUGS (5)
  1. LOSARTAN ORION [Concomitant]
     Indication: HYPERTENSION
     Dosage: 50 MG, DAILY
     Route: 048
  2. PREDNISOLON /00016201/ [Concomitant]
     Active Substance: PREDNISOLONE
     Indication: REITER^S SYNDROME
     Dosage: 5 MG, DAILY
     Route: 048
     Dates: start: 20180511
  3. SALAZOPYRIN EN [Suspect]
     Active Substance: SULFASALAZINE
     Indication: REITER^S SYNDROME
     Dosage: 300 MG, DAILY
     Route: 048
     Dates: start: 20180511, end: 20180717
  4. SALAZOPYRIN EN [Suspect]
     Active Substance: SULFASALAZINE
     Indication: ARTHRITIS
  5. OMNIC OCAS [Concomitant]
     Active Substance: TAMSULOSIN HYDROCHLORIDE
     Indication: BENIGN PROSTATIC HYPERPLASIA
     Dosage: 0.4 MG, DAILY
     Route: 048
     Dates: start: 20171204

REACTIONS (4)
  - Pharyngitis [Not Recovered/Not Resolved]
  - Pyrexia [Not Recovered/Not Resolved]
  - C-reactive protein increased [Not Recovered/Not Resolved]
  - Neutropenia [Not Recovered/Not Resolved]

NARRATIVE: CASE EVENT DATE: 20180717
